FAERS Safety Report 7125525-X (Version None)
Quarter: 2010Q4

REPORT INFORMATION
  Report Type: 
  Country: None (occurrence: None)
  Receive Date: 20101112
  Receipt Date: 20101029
  Transmission Date: 20110411
  Serious: Yes (Other)
  Sender: FDA-Public Use
  Company Number: PI-05124

PATIENT
  Age: 55 Year
  Sex: Male

DRUGS (4)
  1. CHLORAPREP WITH TINT [Suspect]
     Indication: PREOPERATIVE CARE
     Dosage: 26ML, ONCE, TOPICAL
     Route: 061
     Dates: start: 20100628
  2. SAGE CLOTH [Concomitant]
  3. LO-HIST [Concomitant]
  4. VICODIN [Concomitant]

REACTIONS (6)
  - BLISTER [None]
  - CELLULITIS [None]
  - ERYTHEMA [None]
  - PRURITUS [None]
  - STAPHYLOCOCCAL INFECTION [None]
  - SWELLING [None]
